FAERS Safety Report 6395906-0 (Version None)
Quarter: 2009Q4

REPORT INFORMATION
  Report Type: 
  Country: None (occurrence: None)
  Receive Date: 20091009
  Receipt Date: 20090826
  Transmission Date: 20100525
  Serious: No
  Sender: FDA-Public Use
  Company Number: A0804572A

PATIENT
  Age: 28 Year
  Sex: Female

DRUGS (4)
  1. TYKERB [Suspect]
     Dosage: 5TAB PER DAY
     Route: 048
     Dates: start: 20090819
  2. HERCEPTIN [Concomitant]
  3. TAMOXIFEN CITRATE [Concomitant]
  4. IMODIUM [Concomitant]

REACTIONS (1)
  - DIARRHOEA [None]
